FAERS Safety Report 5669521-8 (Version None)
Quarter: 2008Q1

REPORT INFORMATION
  Report Type: 
  Country: None (occurrence: None)
  Receive Date: 20080317
  Receipt Date: 20080311
  Transmission Date: 20080703
  Serious: Yes (Hospitalization, Other)
  Sender: FDA-Public Use
  Company Number: PHEH2008US00599

PATIENT
  Age: 65 Year
  Sex: Female
  Weight: 58.956 kg

DRUGS (3)
  1. DIOVAN [Suspect]
     Indication: HYPERTENSION
     Dosage: 160 MG, UNK
     Dates: start: 20040101
  2. DIOVAN [Suspect]
     Dates: start: 20071201
  3. LISINOPRIL [Concomitant]
     Indication: HYPERTENSION

REACTIONS (16)
  - BIOPSY LIVER [None]
  - CARCINOEMBRYONIC ANTIGEN INCREASED [None]
  - CATHETERISATION VENOUS [None]
  - COLONOSCOPY [None]
  - CONSTIPATION [None]
  - DEEP VEIN THROMBOSIS [None]
  - HAEMOGLOBIN DECREASED [None]
  - HEPATIC NEOPLASM MALIGNANT [None]
  - HYPERTENSION [None]
  - LUNG NEOPLASM MALIGNANT [None]
  - MEDICATION ERROR [None]
  - PROCTOCOLECTOMY [None]
  - SWELLING [None]
  - TRANSFUSION [None]
  - VENA CAVA FILTER INSERTION [None]
  - WEIGHT LOSS DIET [None]
